FAERS Safety Report 20557176 (Version 2)
Quarter: 2022Q1

REPORT INFORMATION
  Report Type: Spontaneous
  Country: PT (occurrence: PT)
  Receive Date: 20220307
  Receipt Date: 20220315
  Transmission Date: 20220423
  Serious: Yes (Other)
  Sender: FDA-Public Use
  Company Number: PT-AUROBINDO-AUR-APL-2022-006795

PATIENT
  Age: 76 Year
  Sex: Female

DRUGS (4)
  1. CARVEDILOL [Suspect]
     Active Substance: CARVEDILOL
     Indication: Product used for unknown indication
     Dosage: UNK
     Route: 065
  2. CARVEDILOL [Suspect]
     Active Substance: CARVEDILOL
     Indication: Cardiomegaly
  3. LISINOPRIL [Suspect]
     Active Substance: LISINOPRIL
     Indication: Product used for unknown indication
     Dosage: UNK
     Route: 065
  4. LISINOPRIL [Suspect]
     Active Substance: LISINOPRIL
     Indication: Cardiomegaly

REACTIONS (4)
  - Cardiotoxicity [Recovering/Resolving]
  - Left ventricular dilatation [Recovering/Resolving]
  - Fatigue [Recovering/Resolving]
  - Condition aggravated [Recovering/Resolving]
